FAERS Safety Report 10994827 (Version 1)
Quarter: 2015Q2

REPORT INFORMATION
  Report Type: Spontaneous
  Country: AU (occurrence: None)
  Receive Date: 20150406
  Receipt Date: 20150406
  Transmission Date: 20150821
  Serious: Yes (Other)
  Sender: FDA-Public Use
  Company Number: None

PATIENT
  Age: 58 Year
  Sex: Male
  Weight: 140 kg

DRUGS (7)
  1. MULTIVITAMIN [Concomitant]
     Active Substance: VITAMINS
  2. SEROQUEL XR [Suspect]
     Active Substance: QUETIAPINE FUMARATE
     Indication: PARANOIA
     Route: 048
     Dates: start: 20150313, end: 20150404
  3. 20MG PROZAC X 2 MANE [Concomitant]
  4. 20MG EDRONAX MANE [Concomitant]
  5. CAMG + D3 [Concomitant]
  6. SEROQUEL XR [Suspect]
     Active Substance: QUETIAPINE FUMARATE
     Route: 048
     Dates: start: 20150313, end: 20150404
  7. OMEGA3 TDS [Concomitant]

REACTIONS (2)
  - Mental disorder [None]
  - Aggression [None]

NARRATIVE: CASE EVENT DATE: 20150404
